FAERS Safety Report 13945704 (Version 1)
Quarter: 2017Q3

REPORT INFORMATION
  Report Type: Spontaneous
  Country: US (occurrence: US)
  Receive Date: 20170907
  Receipt Date: 20170907
  Transmission Date: 20171128
  Serious: No
  Sender: FDA-Public Use
  Company Number: US-BIOGEN-2017BI00453247

PATIENT
  Sex: Female

DRUGS (1)
  1. TECFIDERA [Suspect]
     Active Substance: DIMETHYL FUMARATE
     Indication: MULTIPLE SCLEROSIS
     Dosage: TAKE 1 CAPSULE ONCE A DAY
     Route: 065

REACTIONS (11)
  - Mood swings [Unknown]
  - Urine output decreased [Unknown]
  - Hot flush [Unknown]
  - Chromaturia [Unknown]
  - Heat exhaustion [Unknown]
  - Prescribed underdose [Unknown]
  - Decreased appetite [Unknown]
  - Insomnia [Unknown]
  - Memory impairment [Unknown]
  - Temperature intolerance [Unknown]
  - Fatigue [Unknown]
